FAERS Safety Report 5303238-4 (Version None)
Quarter: 2007Q2

REPORT INFORMATION
  Report Type: 
  Country: None (occurrence: None)
  Receive Date: 20070420
  Receipt Date: 20070410
  Transmission Date: 20071010
  Serious: Yes (Life-Threatening, Hospitalization, Other)
  Sender: FDA-Public Use
  Company Number: US-ELI_LILLY_AND_COMPANY-US200701002195

PATIENT
  Age: 3 Year
  Sex: Female
  Weight: 12.97 kg

DRUGS (1)
  1. ZYPREXA [Suspect]
     Dosage: UNK MG, UNK
     Route: 048
     Dates: start: 20070109, end: 20070109

REACTIONS (14)
  - ABDOMINAL PAIN [None]
  - ACCIDENTAL OVERDOSE [None]
  - ANAEMIA [None]
  - ASTHENIA [None]
  - COMA [None]
  - DEHYDRATION [None]
  - DIARRHOEA [None]
  - INCONTINENCE [None]
  - NEPHRITIS INTERSTITIAL [None]
  - NEPHROPATHY TOXIC [None]
  - PAIN [None]
  - PNEUMONIA [None]
  - PYREXIA [None]
  - RENAL FAILURE [None]
